FAERS Safety Report 9206957 (Version 3)
Quarter: 2013Q3

REPORT INFORMATION
  Report Type: Report from Study
  Country: US (occurrence: US)
  Receive Date: 20130403
  Receipt Date: 20130731
  Transmission Date: 20140515
  Serious: Yes (Death)
  Sender: FDA-Public Use
  Company Number: US-PFIZER INC-2013104489

PATIENT
  Age: 64 Year
  Sex: Male
  Weight: 70.75 kg

DRUGS (4)
  1. BLINDED CELECOXIB [Suspect]
     Indication: NON-SMALL CELL LUNG CANCER
     Dosage: BID, DAYS 1 TO 21 CYCLE 7+
     Route: 048
     Dates: start: 20120120
  2. BLINDED PLACEBO [Suspect]
     Indication: NON-SMALL CELL LUNG CANCER
     Dosage: BID, DAYS 1 TO 21 CYCLE 7+
     Route: 048
     Dates: start: 20120120
  3. CARBOPLATIN [Suspect]
     Indication: NON-SMALL CELL LUNG CANCER
     Dosage: CARBOPLATIN AUC= 5.5 IV DAY 1 (AUC=5.0 WITH PRIOR CHEST RADIOTHERAPY), CYCLE=21 DAYS, CYCLES 1-6
     Route: 042
     Dates: start: 20120120
  4. GEMCITABINE HYDROCHLORIDE [Suspect]
     Indication: NON-SMALL CELL LUNG CANCER
     Dosage: 1000 MG/M2 DAYS 1 AND 8
     Route: 042
     Dates: start: 20120120

REACTIONS (11)
  - Sepsis [Fatal]
  - Respiratory failure [Fatal]
  - Hypercalcaemia [Fatal]
  - Hypoalbuminaemia [Fatal]
  - Hypokalaemia [Fatal]
  - Hyponatraemia [Fatal]
  - Aspartate aminotransferase increased [Fatal]
  - Neutrophil count decreased [Fatal]
  - Platelet count decreased [Fatal]
  - White blood cell count decreased [Fatal]
  - Febrile neutropenia [Fatal]
